FAERS Safety Report 8496675-0 (Version None)
Quarter: 2012Q3

REPORT INFORMATION
  Report Type: 
  Country: None (occurrence: None)
  Receive Date: 20120709
  Receipt Date: 20120629
  Transmission Date: 20120928
  Serious: No
  Sender: FDA-Public Use
  Company Number: US-B.I. PHARMACEUTICALS,INC./RIDGEFIELD-2012-BP-14797BP

PATIENT
  Age: 64 Year
  Sex: Female

DRUGS (4)
  1. SPIRIVA [Suspect]
     Indication: CHRONIC OBSTRUCTIVE PULMONARY DISEASE
     Dosage: 18 MCG
     Route: 055
     Dates: start: 20120611
  2. SYMBICORT [Concomitant]
     Indication: CHRONIC OBSTRUCTIVE PULMONARY DISEASE
  3. HYDROCHLOROTHIAZIDE [Concomitant]
     Indication: HYPERTENSION
     Dosage: 25 MG
     Route: 048
  4. OMEPRAZOLE [Concomitant]
     Indication: DYSPEPSIA
     Dosage: 20 MG
     Route: 048

REACTIONS (1)
  - DYSPNOEA [None]
